FAERS Safety Report 14828939 (Version 1)
Quarter: 2018Q2

REPORT INFORMATION
  Report Type: Report from Study
  Country: US (occurrence: US)
  Receive Date: 20180430
  Receipt Date: 20180430
  Transmission Date: 20180711
  Serious: No
  Sender: FDA-Public Use
  Company Number: PHEH2018US014933

PATIENT
  Sex: Female

DRUGS (3)
  1. NADOLOL. [Suspect]
     Active Substance: NADOLOL
     Indication: ABDOMINAL PAIN UPPER
     Route: 065
  2. CODEINE [Concomitant]
     Active Substance: CODEINE
     Indication: PRODUCT USED FOR UNKNOWN INDICATION
     Route: 065
  3. NADOLOL. [Suspect]
     Active Substance: NADOLOL
     Indication: ABDOMINAL DISCOMFORT

REACTIONS (1)
  - Dizziness [Unknown]
